FAERS Safety Report 17966295 (Version 8)
Quarter: 2020Q3

REPORT INFORMATION
  Report Type: Spontaneous
  Country: FR (occurrence: FR)
  Receive Date: 20200701
  Receipt Date: 20200814
  Transmission Date: 20201103
  Serious: Yes (Death, Hospitalization, Other)
  Sender: FDA-Public Use
  Company Number: FR-CELLTRION INC.-2020FR023773

PATIENT

DRUGS (15)
  1. RITUXIMAB (UNKNOWN) [Suspect]
     Active Substance: RITUXIMAB
     Indication: NEUROMYELITIS OPTICA SPECTRUM DISORDER
     Dosage: MONOTHERAPY FOR 3 YEARS
     Route: 065
  2. RITUXIMAB (UNKNOWN) [Suspect]
     Active Substance: RITUXIMAB
     Indication: ANTIBODY TEST ABNORMAL
     Dosage: 375 MG/M2 (620 MG) FOUR INFUSIONS (INFUSION 2)
     Route: 042
     Dates: start: 201507
  3. FLUOXETINE [Concomitant]
     Active Substance: FLUOXETINE HYDROCHLORIDE
  4. RITUXIMAB (UNKNOWN) [Suspect]
     Active Substance: RITUXIMAB
     Indication: DEMYELINATION
     Dosage: 375 MG/M2 (620 MG) FOUR INFUSIONS (INFUSION 3)
     Route: 042
     Dates: start: 201507
  5. RITUXIMAB (UNKNOWN) [Suspect]
     Active Substance: RITUXIMAB
     Dosage: 1 G EVERY 6 MONTHS
     Route: 051
     Dates: start: 201803, end: 201809
  6. RITUXIMAB (UNKNOWN) [Suspect]
     Active Substance: RITUXIMAB
     Dosage: 375 MG/M2 (620 MG) FOUR INFUSIONS (INFUSION 4)
     Route: 042
     Dates: start: 201507
  7. RITUXIMAB (UNKNOWN) [Suspect]
     Active Substance: RITUXIMAB
     Dosage: 1000 MG
     Route: 065
  8. RITUXIMAB (UNKNOWN) [Suspect]
     Active Substance: RITUXIMAB
     Indication: DEMYELINATION
     Dosage: 375 MG/M2 (620 MG) FOUR INFUSIONS (INFUSION 1)/ 620MG UNK
     Route: 065
     Dates: start: 201507
  9. RITUXIMAB (UNKNOWN) [Suspect]
     Active Substance: RITUXIMAB
     Dosage: 1 G EVERY 6 MONTHS
     Route: 065
     Dates: start: 201607, end: 201706
  10. RITUXIMAB (UNKNOWN) [Suspect]
     Active Substance: RITUXIMAB
     Dosage: 1 G, INFUSION, SOLUTION
     Route: 042
     Dates: start: 201803
  11. METHYLPREDNISOLONE. [Suspect]
     Active Substance: METHYLPREDNISOLONE
     Indication: DEMYELINATION
     Dosage: 1 GRAM, DAILY
     Route: 065
  12. RITUXIMAB (UNKNOWN) [Suspect]
     Active Substance: RITUXIMAB
     Dosage: 1 G EVERY 6 MONTHS
     Route: 042
     Dates: start: 201606, end: 201706
  13. RITUXIMAB (UNKNOWN) [Suspect]
     Active Substance: RITUXIMAB
     Dosage: 1000 MG, INFUSION, SOLUTION
     Route: 042
     Dates: start: 201809
  14. TYSABRI [Suspect]
     Active Substance: NATALIZUMAB
     Indication: MULTIPLE SCLEROSIS
     Dosage: UNK
     Route: 065
     Dates: start: 201306, end: 201410
  15. PREDNISOLONE. [Suspect]
     Active Substance: PREDNISOLONE
     Indication: DEMYELINATION
     Route: 048

REACTIONS (27)
  - Respiratory failure [Fatal]
  - Meningitis enteroviral [Fatal]
  - Ataxia [Fatal]
  - Renal failure [Unknown]
  - Autoimmune demyelinating disease [Fatal]
  - Bacterial sepsis [Fatal]
  - Nausea [Fatal]
  - Dysarthria [Fatal]
  - Coxsackie viral infection [Fatal]
  - Optic neuritis [Fatal]
  - Vomiting [Fatal]
  - Therapeutic product effect incomplete [Fatal]
  - Pregnancy [Unknown]
  - Off label use [Unknown]
  - Arrhythmia [Fatal]
  - Dysmetria [Fatal]
  - Intentional product use issue [Fatal]
  - Intentional product use issue [Unknown]
  - Myelitis [Fatal]
  - Coxsackie myocarditis [Fatal]
  - Meningitis coxsackie viral [Fatal]
  - Product use in unapproved indication [Fatal]
  - Sepsis [Unknown]
  - Cardiogenic shock [Fatal]
  - Neurological decompensation [Fatal]
  - Viral myocarditis [Fatal]
  - Maternal exposure during pregnancy [Unknown]

NARRATIVE: CASE EVENT DATE: 2015
